FAERS Safety Report 16160649 (Version 1)
Quarter: 2019Q2

REPORT INFORMATION
  Report Type: Spontaneous
  Country: GB (occurrence: GB)
  Receive Date: 20190405
  Receipt Date: 20190405
  Transmission Date: 20190711
  Serious: Yes (Other)
  Sender: FDA-Public Use
  Company Number: GB-ROCHE-2153249

PATIENT

DRUGS (1)
  1. AVASTIN [Suspect]
     Active Substance: BEVACIZUMAB
     Indication: PRODUCT USED FOR UNKNOWN INDICATION
     Route: 065

REACTIONS (8)
  - Vision blurred [Unknown]
  - Visual impairment [Unknown]
  - Keratoconus [Unknown]
  - Scleritis [Unknown]
  - Corneal neovascularisation [Unknown]
  - Headache [Unknown]
  - Pain [Unknown]
  - Corneal oedema [Unknown]
